FAERS Safety Report 7801421-7 (Version None)
Quarter: 2011Q4

REPORT INFORMATION
  Report Type: 
  Country: None (occurrence: None)
  Receive Date: 20111005
  Receipt Date: 20110921
  Transmission Date: 20120403
  Serious: Yes (Other)
  Sender: FDA-Public Use
  Company Number: 1000023193

PATIENT
  Age: 23 Year
  Sex: Female
  Weight: 62 kg

DRUGS (2)
  1. FOSFOMYCIN (FOSFOMYCIN TROMETAMOL) (3 GRAM, GRANULATE) [Suspect]
     Indication: CYSTITIS
     Dosage: 3000 MG, ONCE, ORAL
     Route: 048
     Dates: start: 20110816, end: 20110816
  2. HORMONAL CONTRACEPTIVES (HORMONAL CONTRACEPATIVES) (HORMONAL CONTRACEP [Concomitant]

REACTIONS (3)
  - VOMITING [None]
  - GENITAL ERYTHEMA [None]
  - DIARRHOEA [None]
